FAERS Safety Report 5938523-6 (Version None)
Quarter: 2008Q4

REPORT INFORMATION
  Report Type: 
  Country: None (occurrence: None)
  Receive Date: 20081103
  Receipt Date: 20081021
  Transmission Date: 20090506
  Serious: Yes (Other)
  Sender: FDA-Public Use
  Company Number: PHHY2008BR25524

PATIENT
  Sex: Female

DRUGS (2)
  1. TRILEPTAL [Suspect]
     Dosage: 600 MG, Q12H
     Route: 048
  2. TRILEPTAL [Suspect]
     Dosage: UNK
     Route: 048
     Dates: start: 20070101

REACTIONS (2)
  - AMNESIA [None]
  - PETIT MAL EPILEPSY [None]
